FAERS Safety Report 18995456 (Version 1)
Quarter: 2021Q1

REPORT INFORMATION
  Report Type: Report from Study
  Country: None (occurrence: RO)
  Receive Date: 20210310
  Receipt Date: 20210310
  Transmission Date: 20210420
  Serious: Yes (Death, Hospitalization)
  Sender: FDA-Public Use
  Company Number: RO-ABBVIE-21K-135-3809235-00

PATIENT
  Age: 70 Year
  Sex: Male

DRUGS (2)
  1. DUODOPA [Suspect]
     Active Substance: CARBIDOPA\LEVODOPA
  2. DUODOPA [Suspect]
     Active Substance: CARBIDOPA\LEVODOPA
     Indication: PARKINSON^S DISEASE
     Dosage: DM=6.00 DC=3.20 ED=2.00 NRED=0; DMN=0.00 DCN=3.20 EDN=3.20 NREDN=0
     Route: 050
     Dates: start: 20190304, end: 20210307

REACTIONS (4)
  - Somnolence [Unknown]
  - Abdominal pain [Unknown]
  - Cardio-respiratory arrest [Fatal]
  - Faecaloma [Unknown]

NARRATIVE: CASE EVENT DATE: 20210306
